FAERS Safety Report 16454874 (Version 1)
Quarter: 2019Q2

REPORT INFORMATION
  Report Type: Spontaneous
  Country: FR (occurrence: FR)
  Receive Date: 20190620
  Receipt Date: 20190620
  Transmission Date: 20190711
  Serious: Yes (Hospitalization)
  Sender: FDA-Public Use
  Company Number: FR-SUN PHARMACEUTICAL INDUSTRIES LTD-2019RR-210883

PATIENT
  Age: 52 Year
  Sex: Female
  Weight: 48 kg

DRUGS (3)
  1. DEPAKOTE [Suspect]
     Active Substance: DIVALPROEX SODIUM
     Indication: EPILEPSY
     Dosage: 1500 MILLIGRAM, DAILY
     Route: 048
     Dates: start: 20190414, end: 20190420
  2. DEPAKINE [Suspect]
     Active Substance: VALPROATE SODIUM
     Indication: EPILEPSY
     Dosage: 1500 MILLIGRAM, DAILY
     Route: 048
     Dates: end: 201905
  3. PANTOPRAZOLE [Suspect]
     Active Substance: PANTOPRAZOLE
     Indication: GASTROINTESTINAL ULCER PERFORATION
     Dosage: 40 MILLIGRAM, DAILY
     Route: 042
     Dates: start: 20190414, end: 20190429

REACTIONS (2)
  - Renal tubular disorder [Not Recovered/Not Resolved]
  - Urine sodium increased [Not Recovered/Not Resolved]

NARRATIVE: CASE EVENT DATE: 20190415
